FAERS Safety Report 5103936-1 (Version None)
Quarter: 2006Q3

REPORT INFORMATION
  Report Type: 
  Country: None (occurrence: None)
  Receive Date: 20060913
  Receipt Date: 20060905
  Transmission Date: 20061208
  Serious: Yes (Death)
  Sender: FDA-Public Use
  Company Number: US-JNJFOC-20060902232

PATIENT
  Age: 32 Year
  Sex: Female

DRUGS (13)
  1. TRAMADOL HCL [Suspect]
     Indication: DRUG USE FOR UNKNOWN INDICATION
     Route: 048
  2. ACETAMINOPHEN [Suspect]
  3. ACETAMINOPHEN [Suspect]
     Indication: DRUG USE FOR UNKNOWN INDICATION
  4. METAXALONE [Suspect]
     Indication: DRUG USE FOR UNKNOWN INDICATION
  5. VENLAFAXINE [Suspect]
     Indication: DRUG USE FOR UNKNOWN INDICATION
  6. QUETIAPINE [Suspect]
     Indication: DRUG USE FOR UNKNOWN INDICATION
  7. METHOBENZAMIDE [Concomitant]
  8. CYPROHEPTADINE HCL [Concomitant]
  9. TOPIRAMATE [Concomitant]
  10. GABAPENTIN [Concomitant]
  11. COLESTIPOL HCL [Concomitant]
  12. ESOMEPRAZOLE MAGNESIUM [Concomitant]
  13. SUCRALFATE [Concomitant]

REACTIONS (4)
  - COMPLETED SUICIDE [None]
  - CONVULSION [None]
  - INTENTIONAL OVERDOSE [None]
  - MULTIPLE DRUG OVERDOSE [None]
